FAERS Safety Report 20580268 (Version 1)
Quarter: 2022Q1

REPORT INFORMATION
  Report Type: Report from Study
  Country: US (occurrence: US)
  Receive Date: 20220310
  Receipt Date: 20220310
  Transmission Date: 20220423
  Serious: No
  Sender: FDA-Public Use
  Company Number: US-ACADIA PHARMACEUTICALS INC.-ACA-2022-PIM-000562

PATIENT
  Age: 73 Year
  Sex: Male

DRUGS (4)
  1. NUPLAZID [Suspect]
     Active Substance: PIMAVANSERIN TARTRATE
     Indication: Parkinson^s disease
     Dosage: 34 MILLIGRAM, QD
     Route: 048
     Dates: start: 20220131
  2. NUPLAZID [Suspect]
     Active Substance: PIMAVANSERIN TARTRATE
     Dosage: TOOK NUPLAZID AT NIGHT AT 7:30 PM AND THEN AGAIN NEXT MORNING AT 7:30 AM BY MISTAKE
     Route: 048
     Dates: start: 20220213, end: 20220214
  3. LITHIUM [Concomitant]
     Active Substance: LITHIUM
     Dosage: ER, 900 MILLIGRAM
     Dates: start: 20180109
  4. PRISTIQ EXTENDED-RELEASE [Concomitant]
     Active Substance: DESVENLAFAXINE SUCCINATE
     Dosage: 200 MILLIGRAM
     Dates: start: 20200220

REACTIONS (1)
  - Inappropriate schedule of product administration [Unknown]

NARRATIVE: CASE EVENT DATE: 20220213
